FAERS Safety Report 9522607 (Version 1)
Quarter: 2013Q3

REPORT INFORMATION
  Report Type: Spontaneous
  Country: CH (occurrence: CH)
  Receive Date: 20130913
  Receipt Date: 20130913
  Transmission Date: 20140515
  Serious: Yes (Death)
  Sender: FDA-Public Use
  Company Number: CH-CELGENEUS-151-21880-13090648

PATIENT
  Sex: Male

DRUGS (2)
  1. REVLIMID [Suspect]
     Indication: T-CELL LYMPHOMA
     Route: 048
  2. REVLIMID [Suspect]
     Route: 048

REACTIONS (2)
  - Death [Fatal]
  - Adverse event [Unknown]
